FAERS Safety Report 8408997 (Version 27)
Quarter: 2019Q3

REPORT INFORMATION
  Report Type: Report from Study
  Country: CA (occurrence: CA)
  Receive Date: 20120216
  Receipt Date: 20190821
  Transmission Date: 20191005
  Serious: Yes (Hospitalization, Other)
  Sender: FDA-Public Use
  Company Number: CA-ROCHE-1036131

PATIENT
  Age: 84 Year
  Sex: Female
  Weight: 55 kg

DRUGS (16)
  1. PREDNISONE. [Concomitant]
     Active Substance: PREDNISONE
  2. ACTEMRA [Suspect]
     Active Substance: TOCILIZUMAB
     Route: 042
     Dates: start: 20160531
  3. ENBREL [Concomitant]
     Active Substance: ETANERCEPT
  4. ACTEMRA [Suspect]
     Active Substance: TOCILIZUMAB
     Route: 042
     Dates: start: 20140606, end: 20150710
  5. ACTEMRA [Suspect]
     Active Substance: TOCILIZUMAB
     Route: 042
     Dates: start: 20150820, end: 20151216
  6. ACTEMRA [Suspect]
     Active Substance: TOCILIZUMAB
     Route: 042
     Dates: start: 20160113, end: 20160506
  7. NORVASC [Concomitant]
     Active Substance: AMLODIPINE BESYLATE
     Indication: HYPERTENSION
  8. SYNTHROID [Concomitant]
     Active Substance: LEVOTHYROXINE SODIUM
  9. COSOPT [Concomitant]
     Active Substance: DORZOLAMIDE HYDROCHLORIDE\TIMOLOL MALEATE
     Route: 047
  10. METHOTREXATE. [Concomitant]
     Active Substance: METHOTREXATE
  11. EPREX [Concomitant]
     Active Substance: ERYTHROPOIETIN
     Route: 058
  12. ACTEMRA [Suspect]
     Active Substance: TOCILIZUMAB
     Indication: RHEUMATOID ARTHRITIS
     Route: 042
     Dates: start: 20101027, end: 20111123
  13. ACTEMRA [Suspect]
     Active Substance: TOCILIZUMAB
     Route: 042
     Dates: start: 20120801, end: 20120829
  14. ACTEMRA [Suspect]
     Active Substance: TOCILIZUMAB
     Route: 042
     Dates: start: 20130130, end: 20140501
  15. FOSAMAX [Concomitant]
     Active Substance: ALENDRONATE SODIUM
     Indication: HYPERTENSION
  16. LUMIGAN [Concomitant]
     Active Substance: BIMATOPROST
     Route: 047

REACTIONS (19)
  - Cardiac disorder [Not Recovered/Not Resolved]
  - Infusion related reaction [Unknown]
  - Rectal haemorrhage [Unknown]
  - Leukopenia [Unknown]
  - Blood pressure diastolic decreased [Unknown]
  - Weight decreased [Not Recovered/Not Resolved]
  - Blood pressure increased [Unknown]
  - Blood pressure diastolic abnormal [Unknown]
  - Weight increased [Unknown]
  - Diarrhoea [Not Recovered/Not Resolved]
  - Blood pressure diastolic decreased [Unknown]
  - Off label use [Unknown]
  - Hypotension [Unknown]
  - Myocardial infarction [Unknown]
  - Blood pressure increased [Unknown]
  - Weight increased [Recovering/Resolving]
  - Blood pressure systolic increased [Unknown]
  - Intentional product use issue [Unknown]
  - Blood pressure fluctuation [Unknown]

NARRATIVE: CASE EVENT DATE: 20130917
